FAERS Safety Report 17780722 (Version 2)
Quarter: 2020Q2

REPORT INFORMATION
  Report Type: Report from Study
  Country: GB (occurrence: GB)
  Receive Date: 20200513
  Receipt Date: 20200626
  Transmission Date: 20200714
  Serious: Yes (Hospitalization, Other)
  Sender: FDA-Public Use
  Company Number: GB-MYLANLABS-2020M1046149

PATIENT
  Age: 58 Year
  Sex: Male

DRUGS (3)
  1. EVEROLIMUS. [Suspect]
     Active Substance: EVEROLIMUS
     Indication: PRODUCT USED FOR UNKNOWN INDICATION
     Dosage: UNK
  2. SOMATULINE AUTOGEL [Suspect]
     Active Substance: LANREOTIDE ACETATE
     Indication: NEUROENDOCRINE TUMOUR
     Dosage: 120 MG, EVERY 28 DAY (SOMATULINE AUTOGEL120MG/0.5ML)
     Route: 058
  3. SOMATULINE AUTOGEL [Suspect]
     Active Substance: LANREOTIDE ACETATE
     Indication: PANCREATIC CARCINOMA
     Dosage: 120 MG, EVERY 28 DAY (SOMATULINE AUTOGEL120MG/0.5ML)
     Route: 058

REACTIONS (11)
  - Dry skin [Unknown]
  - Blood glucose increased [Recovered/Resolved]
  - Device occlusion [Unknown]
  - Influenza like illness [Unknown]
  - Haemorrhoids [Unknown]
  - Acquired phimosis [Unknown]
  - Postoperative wound infection [Unknown]
  - Steatorrhoea [Unknown]
  - Biliary sepsis [Unknown]
  - Diarrhoea [Recovered/Resolved]
  - Off label use [Unknown]

NARRATIVE: CASE EVENT DATE: 2020
